FAERS Safety Report 25496636 (Version 2)
Quarter: 2025Q3

REPORT INFORMATION
  Report Type: Report from Study
  Country: CO (occurrence: CO)
  Receive Date: 20250630
  Receipt Date: 20250811
  Transmission Date: 20251020
  Serious: Yes (Hospitalization)
  Sender: BIOGEN
  Company Number: CO-BIOGEN-2025BI01311184

PATIENT
  Sex: Male
  Weight: 86 kg

DRUGS (6)
  1. TYSABRI [Suspect]
     Active Substance: NATALIZUMAB
     Indication: Multiple sclerosis
     Route: 050
     Dates: start: 20200630
  2. PREGABALIN [Concomitant]
     Active Substance: PREGABALIN
     Indication: Neuralgia
     Route: 050
     Dates: start: 2012
  3. PREGABALIN [Concomitant]
     Active Substance: PREGABALIN
     Dosage: UNKNOWN DOSE
     Route: 050
     Dates: start: 2018
  4. DULOXETINE [Concomitant]
     Active Substance: DULOXETINE
     Indication: Neuralgia
     Route: 050
     Dates: start: 2012
  5. DULOXETINE [Concomitant]
     Active Substance: DULOXETINE
     Dosage: UNKNOWN DOSE
     Route: 050
     Dates: start: 2018
  6. VITAMIN D3 [Concomitant]
     Active Substance: CHOLECALCIFEROL
     Indication: Multiple sclerosis
     Route: 050
     Dates: start: 2012

REACTIONS (2)
  - Multiple sclerosis relapse [Recovered/Resolved]
  - Hypertension [Not Recovered/Not Resolved]

NARRATIVE: CASE EVENT DATE: 20220101
